FAERS Safety Report 8518120-9 (Version None)
Quarter: 2012Q3

REPORT INFORMATION
  Report Type: 
  Country: None (occurrence: None)
  Receive Date: 20120712
  Receipt Date: 20120712
  Transmission Date: 20120928
  Serious: Yes (Other)
  Sender: FDA-Public Use
  Company Number: None

PATIENT

DRUGS (1)
  1. ATELVIA [Suspect]
     Indication: OSTEOPOROSIS
     Dosage: 35 MG ONCE A WEEK PO
     Route: 048
     Dates: start: 20120510, end: 20120711

REACTIONS (2)
  - FREQUENT BOWEL MOVEMENTS [None]
  - HAEMORRHOIDS [None]
